FAERS Safety Report 5463295-1 (Version None)
Quarter: 2007Q3

REPORT INFORMATION
  Report Type: 
  Country: None (occurrence: None)
  Receive Date: 20070920
  Receipt Date: 20070913
  Transmission Date: 20080115
  Serious: Yes (Death)
  Sender: FDA-Public Use
  Company Number: JP-JNJFOC-20070902960

PATIENT
  Sex: Male
  Weight: 58 kg

DRUGS (12)
  1. REMICADE [Suspect]
  2. REMICADE [Suspect]
  3. REMICADE [Suspect]
  4. REMICADE [Suspect]
  5. REMICADE [Suspect]
  6. REMICADE [Suspect]
  7. REMICADE [Suspect]
  8. REMICADE [Suspect]
  9. REMICADE [Suspect]
  10. REMICADE [Suspect]
     Indication: CROHN'S DISEASE
  11. PENTASA [Concomitant]
     Indication: CROHN'S DISEASE
     Route: 048
  12. IMURAN [Concomitant]
     Indication: CROHN'S DISEASE
     Dosage: 25-50 MG
     Route: 048

REACTIONS (1)
  - MULTI-ORGAN FAILURE [None]
